FAERS Safety Report 5593737-2 (Version None)
Quarter: 2007Q4

REPORT INFORMATION
  Report Type: 
  Country: None (occurrence: None)
  Receive Date: 20071218
  Receipt Date: 20070312
  Transmission Date: 20080405
  Serious: Yes (Other)
  Sender: FDA-Public Use
  Company Number: 2006141093

PATIENT
  Age: 59 Year
  Sex: Female
  Weight: 54.4 kg

DRUGS (4)
  1. BEXTRA [Suspect]
     Indication: ARTHRITIS
     Dosage: 10 MG (1 IN 1 D),ORAL
     Route: 048
     Dates: start: 20040201, end: 20040801
  2. BEXTRA [Suspect]
     Indication: FIBROMYALGIA
     Dosage: 10 MG (1 IN 1 D),ORAL
     Route: 048
     Dates: start: 20040201, end: 20040801
  3. BEXTRA [Suspect]
     Indication: INFLAMMATION
     Dosage: 10 MG (1 IN 1 D),ORAL
     Route: 048
     Dates: start: 20040201, end: 20040801
  4. BEXTRA [Suspect]
     Indication: PAIN
     Dosage: 10 MG (1 IN 1 D),ORAL
     Route: 048
     Dates: start: 20040201, end: 20040801

REACTIONS (2)
  - HYPOAESTHESIA [None]
  - MYOCARDIAL INFARCTION [None]
